FAERS Safety Report 9415207 (Version 1)
Quarter: 2013Q3

REPORT INFORMATION
  Report Type: Spontaneous
  Country: US (occurrence: US)
  Receive Date: 20130723
  Receipt Date: 20130723
  Transmission Date: 20140515
  Serious: Yes (Hospitalization)
  Sender: FDA-Public Use
  Company Number: US-B.I. PHARMACEUTICALS,INC./RIDGEFIELD-2013-BI-21221BP

PATIENT
  Age: 79 Year
  Sex: Female
  Weight: 64 kg

DRUGS (7)
  1. COMBIVENT [Suspect]
     Indication: CHRONIC OBSTRUCTIVE PULMONARY DISEASE
     Dosage: STRENGTH: 18 MCG / 103 MCG; DAILY DOSE: 144 MCG/824 MCG
     Route: 055
     Dates: start: 1996
  2. CARDIVAL [Concomitant]
     Indication: CARDIAC DISORDER
     Dosage: 12.5 MG
     Route: 048
     Dates: start: 2012
  3. DICLOFENAC SODIUM [Concomitant]
     Indication: ARTHRITIS
     Dosage: 1 ANZ
     Route: 048
     Dates: start: 201302
  4. FUROSEMIDE [Concomitant]
     Indication: DIURETIC THERAPY
     Dosage: 20 MG
     Route: 048
     Dates: start: 2012
  5. METFORMIN [Concomitant]
     Indication: DIABETES MELLITUS
     Dosage: 1 ANZ
     Route: 048
     Dates: start: 2008
  6. CRESTOR [Concomitant]
     Indication: BLOOD CHOLESTEROL INCREASED
     Dosage: 40 MG
     Route: 048
  7. SYMBICORT [Concomitant]
     Indication: CHRONIC OBSTRUCTIVE PULMONARY DISEASE
     Dosage: 2 PUF
     Route: 055
     Dates: start: 2008

REACTIONS (1)
  - Volvulus [Recovered/Resolved]
